FAERS Safety Report 7372981-8 (Version None)
Quarter: 2011Q1

REPORT INFORMATION
  Report Type: 
  Country: None (occurrence: None)
  Receive Date: 20110324
  Receipt Date: 20110322
  Transmission Date: 20110831
  Serious: Yes (Other)
  Sender: FDA-Public Use
  Company Number: JP-PFIZER INC-2011033621

PATIENT
  Age: 32 Year
  Sex: Male

DRUGS (11)
  1. AMOXAN [Concomitant]
     Indication: DEPRESSION
     Dosage: 25 MG, 2X/DAY
     Route: 048
     Dates: start: 20100901
  2. ROHYPNOL [Concomitant]
     Indication: INSOMNIA
     Dosage: 2 MG, 1X/DAY
     Route: 048
     Dates: start: 20100701
  3. BENZALIN [Concomitant]
     Indication: INSOMNIA
     Dosage: 10 MG, 1X/DAY
     Route: 048
     Dates: start: 20101001
  4. ZOLOFT [Suspect]
     Dosage: 100 MG, 1X/DAY
  5. LEXOTAN [Concomitant]
     Indication: ANXIETY
     Dosage: 2 MG, 3X/DAY
     Route: 048
     Dates: start: 20100701
  6. RIZE [Concomitant]
     Indication: ANXIETY
     Dosage: 5 MG, 1X/DAY
     Route: 048
     Dates: start: 20100701
  7. ZOLOFT [Suspect]
     Indication: DEPRESSION
     Dosage: 75 MG, 1X/DAY
     Route: 048
     Dates: start: 20100701
  8. ANAFRANIL [Suspect]
     Dosage: 30 MG, 1X/DAY
  9. PREDONINE [Suspect]
     Indication: IDIOPATHIC THROMBOCYTOPENIC PURPURA
     Dosage: 20 MG, 1X/DAY
     Route: 048
     Dates: start: 20081001
  10. PREDONINE [Suspect]
     Dosage: 8 MG, 1X/DAY
  11. PREDONINE [Suspect]
     Dosage: 10 MG, 1X/DAY
     Route: 048

REACTIONS (3)
  - MYOCLONUS [None]
  - HEADACHE [None]
  - DYSLALIA [None]
